FAERS Safety Report 21621632 (Version 1)
Quarter: 2022Q4

REPORT INFORMATION
  Report Type: Other
  Country: JP (occurrence: None)
  Receive Date: 20221121
  Receipt Date: 20221121
  Transmission Date: 20230113
  Serious: Yes (Hospitalization)
  Sender: FDA-Public Use
  Company Number: JP-Merck Healthcare KGaA-9365626

PATIENT
  Age: 40 Year
  Sex: Female

DRUGS (5)
  1. CHORIOGONADOTROPIN ALFA [Suspect]
     Active Substance: CHORIOGONADOTROPIN ALFA
     Indication: Infertility
     Dosage: ADMINISTERED WEEKLY OR BIWEEKLY
     Route: 042
  2. CLOMIPHENE [Suspect]
     Active Substance: CLOMIPHENE
     Indication: Infertility
     Dosage: ADMINISTERED 5 DAYS EVERY MONTH
  3. CABERGOLINE [Suspect]
     Active Substance: CABERGOLINE
     Indication: Infertility
  4. MEDROXYPROGESTERONE ACETATE [Suspect]
     Active Substance: MEDROXYPROGESTERONE ACETATE
     Indication: Infertility
     Dosage: ADMINISTERED DAILY
  5. CEFDINIR [Concomitant]
     Active Substance: CEFDINIR
     Indication: Prophylaxis
     Dosage: ADMINISTERED FOR 2 DAYS EVERY MONTH

REACTIONS (3)
  - Stevens-Johnson syndrome [Recovering/Resolving]
  - Keratitis [Not Recovered/Not Resolved]
  - Off label use [Unknown]
